FAERS Safety Report 21032355 (Version 1)
Quarter: 2022Q3

REPORT INFORMATION
  Report Type: Report from Study
  Country: US (occurrence: US)
  Receive Date: 20220701
  Receipt Date: 20220701
  Transmission Date: 20221027
  Serious: Yes (Hospitalization)
  Sender: FDA-Public Use
  Company Number: US-GILEAD-2022-0587927

PATIENT
  Age: 48 Year
  Sex: Female

DRUGS (2)
  1. AMBRISENTAN [Suspect]
     Active Substance: AMBRISENTAN
     Indication: Pulmonary hypertension
     Dosage: 10 MG, QD
     Route: 065
     Dates: start: 202104
  2. REMODULIN [Suspect]
     Active Substance: TREPROSTINIL
     Indication: Product used for unknown indication
     Dosage: UNK
     Route: 065
     Dates: start: 202109, end: 202203

REACTIONS (1)
  - Accident [Unknown]

NARRATIVE: CASE EVENT DATE: 20220301
